FAERS Safety Report 21516437 (Version 1)
Quarter: 2022Q4

REPORT INFORMATION
  Report Type: Spontaneous
  Country: HR (occurrence: HR)
  Receive Date: 20221027
  Receipt Date: 20221027
  Transmission Date: 20230113
  Serious: Yes (Death, Life-Threatening, Hospitalization, Other)
  Sender: FDA-Public Use
  Company Number: None

PATIENT
  Age: 79 Year
  Sex: Male

DRUGS (8)
  1. PRADAXA [Suspect]
     Active Substance: DABIGATRAN ETEXILATE MESYLATE
     Indication: Atrial fibrillation
     Route: 048
     Dates: start: 202005, end: 20220625
  2. RAMIPRIL [Concomitant]
     Active Substance: RAMIPRIL
     Indication: Product used for unknown indication
     Route: 048
  3. CARVEDILOL [Concomitant]
     Active Substance: CARVEDILOL
     Indication: Product used for unknown indication
     Route: 048
  4. Folacin [Concomitant]
     Indication: Product used for unknown indication
     Route: 048
     Dates: start: 202005
  5. FUROSEMIDE [Concomitant]
     Active Substance: FUROSEMIDE
     Indication: Product used for unknown indication
     Dosage: 1/2TBL
     Route: 048
     Dates: start: 2019
  6. ARICEPT [Concomitant]
     Active Substance: DONEPEZIL HYDROCHLORIDE
     Indication: Product used for unknown indication
     Route: 048
     Dates: start: 202102
  7. Kalinor [Concomitant]
     Indication: Product used for unknown indication
     Route: 048
     Dates: start: 2019
  8. Duster duo [Concomitant]
     Indication: Product used for unknown indication
     Route: 048

REACTIONS (3)
  - Cardiac failure chronic [Fatal]
  - Microcytic anaemia [Fatal]
  - Melaena [Fatal]

NARRATIVE: CASE EVENT DATE: 20220113
